FAERS Safety Report 18265236 (Version 1)
Quarter: 2020Q3

REPORT INFORMATION
  Report Type: Spontaneous
  Country: US (occurrence: US)
  Receive Date: 20200915
  Receipt Date: 20200915
  Transmission Date: 20201103
  Serious: No
  Sender: FDA-Public Use
  Company Number: US-TOLMAR, INC.-20US022569

PATIENT
  Age: 63 Year
  Sex: Male

DRUGS (2)
  1. ELIGARD [Suspect]
     Active Substance: LEUPROLIDE ACETATE
     Dosage: 22.5 MG
     Route: 065
     Dates: start: 202005
  2. ELIGARD [Suspect]
     Active Substance: LEUPROLIDE ACETATE
     Indication: PROSTATE CANCER
     Dosage: 22.5 MG
     Route: 065
     Dates: start: 20200828

REACTIONS (1)
  - Intercepted product prescribing error [None]

NARRATIVE: CASE EVENT DATE: 20200828
